FAERS Safety Report 10488176 (Version 2)
Quarter: 2014Q4

REPORT INFORMATION
  Report Type: Spontaneous
  Country: US (occurrence: US)
  Receive Date: 20141002
  Receipt Date: 20141002
  Transmission Date: 20150528
  Serious: Yes (Other)
  Sender: FDA-Public Use
  Company Number: US-TEVA-440502USA

PATIENT
  Sex: Male

DRUGS (2)
  1. LEVETIRACETAM. [Concomitant]
     Active Substance: LEVETIRACETAM
  2. CARBAMAZEPINE. [Suspect]
     Active Substance: CARBAMAZEPINE
     Indication: SEIZURE
     Dosage: 600 MILLIGRAM DAILY; 2 TABS TID
     Route: 048

REACTIONS (4)
  - Aura [Unknown]
  - Aphthous stomatitis [Unknown]
  - Seizure [Unknown]
  - Partial seizures [Unknown]

NARRATIVE: CASE EVENT DATE: 2009
